FAERS Safety Report 18997247 (Version 2)
Quarter: 2021Q1

REPORT INFORMATION
  Report Type: Report from Study
  Country: IL (occurrence: IL)
  Receive Date: 20210311
  Receipt Date: 20210322
  Transmission Date: 20210420
  Serious: Yes (Hospitalization, Other)
  Sender: FDA-Public Use
  Company Number: IL-JNJFOC-20210131805

PATIENT
  Age: 53 Year
  Sex: Male

DRUGS (2)
  1. STELARA [Suspect]
     Active Substance: USTEKINUMAB
  2. STELARA [Suspect]
     Active Substance: USTEKINUMAB
     Indication: CROHN^S DISEASE
     Route: 058
     Dates: start: 20200624

REACTIONS (5)
  - Crohn^s disease [Unknown]
  - Post procedural haematoma [Unknown]
  - Intestinal obstruction [Not Recovered/Not Resolved]
  - Postoperative wound infection [Recovering/Resolving]
  - Haemoglobin decreased [Recovering/Resolving]
